FAERS Safety Report 9161325 (Version 3)
Quarter: 2013Q3

REPORT INFORMATION
  Report Type: Spontaneous
  Country: US (occurrence: US)
  Receive Date: 20130313
  Receipt Date: 20130821
  Transmission Date: 20140515
  Serious: No
  Sender: FDA-Public Use
  Company Number: US-009507513-1303USA005875

PATIENT
  Sex: Female

DRUGS (2)
  1. PEGINTRON [Suspect]
     Indication: HEPATITIS C
     Dosage: VIAL PEGINTRON
     Dates: start: 20130305
  2. REBETOL [Suspect]
     Indication: HEPATITIS C
     Dosage: UNK
     Dates: start: 20130305

REACTIONS (20)
  - Feeling abnormal [Unknown]
  - Chills [Unknown]
  - Musculoskeletal disorder [Unknown]
  - Fatigue [Unknown]
  - Malaise [Unknown]
  - Hypoaesthesia [Unknown]
  - Hypoaesthesia [Unknown]
  - Mood swings [Unknown]
  - Eye pain [Unknown]
  - Memory impairment [Unknown]
  - Fatigue [Unknown]
  - Diarrhoea [Unknown]
  - Chromaturia [Unknown]
  - Balance disorder [Unknown]
  - Tinnitus [Unknown]
  - Blister [Unknown]
  - Skin disorder [Unknown]
  - Depression [Unknown]
  - Hyperglycaemia [Unknown]
  - Nail disorder [Unknown]
